FAERS Safety Report 8447630-8 (Version None)
Quarter: 2012Q2

REPORT INFORMATION
  Report Type: 
  Country: None (occurrence: None)
  Receive Date: 20120612
  Receipt Date: 20101105
  Transmission Date: 20120825
  Serious: Yes (Life-Threatening, Hospitalization, Other)
  Sender: FDA-Public Use
  Company Number: 2010147982

PATIENT
  Age: 73 Year
  Sex: Female

DRUGS (10)
  1. EBRANTIL (URAPIDIL) [Concomitant]
  2. VENORUTON (TROXERUTIN) [Concomitant]
  3. FRAGMIN [Suspect]
     Indication: PROPHYLAXIS
     Dosage: 5000 IU,
     Dates: start: 20101027
  4. ALISKIREN (ALISKIREN) [Concomitant]
  5. PREDUCTAL (TRIMETAZIDINE) [Concomitant]
  6. HYPNOGEN (ZOLPIDEM TARTRATE) [Concomitant]
  7. LUSOPRESS (NITRENDIPINE) [Concomitant]
  8. CORNEREGEL (DEXPANTHENOL) [Concomitant]
  9. GINKO BILOBA (GINKGO BILOBA) [Concomitant]
  10. PRITOR (TELMISARTAN) [Concomitant]

REACTIONS (2)
  - ACUTE MYOCARDIAL INFARCTION [None]
  - PULMONARY EMBOLISM [None]
